FAERS Safety Report 9522635 (Version 1)
Quarter: 2013Q1

REPORT INFORMATION
  Report Type: Spontaneous
  Country: US (occurrence: None)
  Receive Date: 20130305
  Receipt Date: 20130305
  Transmission Date: 20140127
  Serious: Yes (Hospitalization, Other)
  Sender: FDA-Public Use
  Company Number: 163-21880-12032269

PATIENT
  Age: 64 Year
  Sex: Male
  Weight: 92.99 kg

DRUGS (13)
  1. REVLIMID (LENALIDOMIDE) (CAPSULES) [Suspect]
     Indication: PLASMA CELL MYELOMA
     Dosage: 5 MG, 14 IN 14 D, PO
     Route: 048
     Dates: start: 20120107
  2. ACETAMINOPHEN (PARACETAMOL) (TABLETS)? [Concomitant]
  3. ACYCLOVIR (ACICLOVIR) (TABLETS) [Concomitant]
  4. DEXAMETHASONE (DEXAMETHASONE) (TABLETS) [Concomitant]
  5. LORAZEPAM (LORAZEPAM) (TABLETS) [Concomitant]
  6. VELCADE (BORTEZOMIB) (INJECTION) [Concomitant]
  7. NEUPOGEN (FILGRASTIM) (INJECTION) [Concomitant]
  8. OMEPRAZOLE (OMEPRAZOLE) (CAPSULES) [Concomitant]
  9. SIMVASTATIN [Concomitant]
  10. TRIAMTERINE/HCTZ (DYAZIDE) (CAPSULES) [Concomitant]
  11. AREDIA (PAMIDRONATE DISODIUM) (INJECTION) [Concomitant]
  12. ATENOLOL (ATENOLOL) (TABLETS) [Concomitant]
  13. NEXAVAR (SORAFENIS TOSILATE) (TABLETS) [Concomitant]

REACTIONS (2)
  - Renal failure [None]
  - Blood urine present [None]
